FAERS Safety Report 11926616 (Version 1)
Quarter: 2016Q1

REPORT INFORMATION
  Report Type: Spontaneous
  Country: US (occurrence: None)
  Receive Date: 20160115
  Receipt Date: 20160115
  Transmission Date: 20160526
  Serious: Yes (Other)
  Sender: FDA-Public Use
  Company Number: None

PATIENT
  Age: 65 Year
  Sex: Female

DRUGS (1)
  1. PLEGRIDY [Suspect]
     Active Substance: PEGINTERFERON BETA-1A
     Indication: MULTIPLE SCLEROSIS
     Dosage: INJECT 125MCG, EVERY 14 DAYS, SUB-Q
     Dates: start: 20151026, end: 20151224

REACTIONS (3)
  - Blood count abnormal [None]
  - Neutropenia [None]
  - Lymphopenia [None]

NARRATIVE: CASE EVENT DATE: 20151224
